FAERS Safety Report 8604965-3 (Version None)
Quarter: 2012Q3

REPORT INFORMATION
  Report Type: 
  Country: None (occurrence: None)
  Receive Date: 20120820
  Receipt Date: 20120816
  Transmission Date: 20120928
  Serious: Yes (Hospitalization)
  Sender: FDA-Public Use
  Company Number: US-PFIZER INC-2012201460

PATIENT
  Age: 72 Year
  Sex: Male
  Weight: 82.086 kg

DRUGS (12)
  1. NORVASC [Suspect]
     Indication: HYPERTENSION
     Dosage: 5 MG, DAILY
  2. LISINOPRIL [Concomitant]
     Indication: HYPERTENSION
     Dosage: 20 MG, DAILY
  3. LOPID [Suspect]
     Indication: BLOOD TRIGLYCERIDES INCREASED
     Dosage: 600 MG, 2X/DAY
  4. ACETYLSALICYLIC ACID [Concomitant]
     Indication: PERIPHERAL VASCULAR DISORDER
     Dosage: 81 MG, DAILY
  5. CRESTOR [Suspect]
     Indication: DYSLIPIDAEMIA
     Dosage: 10 MG, DAILY
  6. ATENOLOL [Concomitant]
     Indication: HYPERTENSION
     Dosage: 25 MG, 2X/DAY
  7. VITAMIN B-12 [Concomitant]
     Dosage: 1000 IU, DAILY
  8. PLETAL [Concomitant]
     Indication: PERIPHERAL VASCULAR DISORDER
     Dosage: 100 MG, 2X/DAY
  9. NOVOLIN R [Concomitant]
     Indication: DIABETES MELLITUS
     Dosage: UNK
  10. COUMADIN [Concomitant]
     Dosage: 2.5 MG DAILY ON MONDAY AND FRIDAY,5MG DAILY REST OF DAYS
  11. TERAZOSIN [Concomitant]
     Indication: HYPERTENSION
     Dosage: 2 MG, DAILY
  12. VITAMIN D [Concomitant]
     Dosage: 2000 IU, DAILY

REACTIONS (4)
  - HIGH DENSITY LIPOPROTEIN DECREASED [None]
  - BLOOD CHOLESTEROL INCREASED [None]
  - RENAL FAILURE [None]
  - BLOOD TRIGLYCERIDES INCREASED [None]
